FAERS Safety Report 6274235-X (Version None)
Quarter: 2009Q3

REPORT INFORMATION
  Report Type: 
  Country: None (occurrence: None)
  Receive Date: 20090720
  Receipt Date: 20090714
  Transmission Date: 20100115
  Serious: Yes (Other)
  Sender: FDA-Public Use
  Company Number: US-ASTRAZENECA-2009UW19733

PATIENT
  Age: 66 Year
  Sex: Female

DRUGS (3)
  1. ARIMIDEX [Suspect]
     Route: 048
     Dates: start: 20060101
  2. ACTONEL [Concomitant]
  3. SIMVASTATIN [Concomitant]

REACTIONS (4)
  - ARTHRALGIA [None]
  - LYMPHOEDEMA [None]
  - WEIGHT INCREASED [None]
  - WRIST SURGERY [None]
